FAERS Safety Report 7467178-7 (Version None)
Quarter: 2011Q2

REPORT INFORMATION
  Report Type: 
  Country: None (occurrence: None)
  Receive Date: 20110509
  Receipt Date: 20101112
  Transmission Date: 20111010
  Serious: No
  Sender: FDA-Public Use
  Company Number: US-ALEXION-A201001462

PATIENT

DRUGS (7)
  1. SOLIRIS [Suspect]
     Indication: PAROXYSMAL NOCTURNAL HAEMOGLOBINURIA
     Dosage: 600 MG, QW
     Route: 042
     Dates: start: 20101105, end: 20101119
  2. WARFARIN [Concomitant]
     Indication: THROMBOSIS PROPHYLAXIS
  3. METOPROLOL TARTRATE [Concomitant]
     Indication: ATRIAL FIBRILLATION
     Dosage: 50 MG, QD
  4. PROAIR HFA [Concomitant]
     Indication: ASTHMA
     Dosage: UNK
  5. WARFARIN [Concomitant]
     Indication: PAROXYSMAL NOCTURNAL HAEMOGLOBINURIA
     Dosage: 4 MG, QD
  6. VITAMIN D [Concomitant]
     Dosage: UNK
  7. SOLIRIS [Suspect]
     Dosage: 900 MG, UNK
     Route: 042
     Dates: start: 20101129

REACTIONS (3)
  - CHEST PAIN [None]
  - HEADACHE [None]
  - ABDOMINAL DISCOMFORT [None]
